FAERS Safety Report 13518324 (Version 2)
Quarter: 2017Q2

REPORT INFORMATION
  Report Type: Spontaneous
  Country: US (occurrence: US)
  Receive Date: 20170505
  Receipt Date: 20170531
  Transmission Date: 20170830
  Serious: No
  Sender: FDA-Public Use
  Company Number: US-SHIRE-US201710106

PATIENT
  Sex: Female

DRUGS (1)
  1. LIALDA [Suspect]
     Active Substance: MESALAMINE
     Indication: PRODUCT USED FOR UNKNOWN INDICATION
     Dosage: UNK, UNKNOWN
     Route: 048

REACTIONS (11)
  - Adverse event [Unknown]
  - Hunger [Unknown]
  - Colitis [Unknown]
  - Bladder disorder [Unknown]
  - Pollakiuria [Unknown]
  - Irritability [Unknown]
  - Arthralgia [Unknown]
  - Viral upper respiratory tract infection [Unknown]
  - Feeling abnormal [Unknown]
  - Frustration tolerance decreased [Unknown]
  - Abdominal pain [Unknown]
